FAERS Safety Report 7827858-8 (Version None)
Quarter: 2011Q4

REPORT INFORMATION
  Report Type: 
  Country: None (occurrence: None)
  Receive Date: 20111020
  Receipt Date: 20111007
  Transmission Date: 20120403
  Serious: Yes (Death, Hospitalization, Other)
  Sender: FDA-Public Use
  Company Number: US-BAYER-201011156NA

PATIENT
  Age: 54 Year
  Sex: Male
  Weight: 83.447 kg

DRUGS (45)
  1. TOPROL-XL [Concomitant]
     Dosage: 100 MG, QD
     Dates: end: 20041218
  2. NORVASC [Concomitant]
     Dosage: 7.5 MG, QD
     Dates: end: 20041218
  3. ZOCOR [Concomitant]
     Dosage: 20 MG, QD
     Dates: end: 20041218
  4. ZANTAC [Concomitant]
     Dosage: 150 MG, UNK
     Dates: end: 20041218
  5. SUSTIVA [Concomitant]
     Dosage: 600 MG, UNK
     Dates: end: 20041218
  6. ZIAGEN [Concomitant]
     Dosage: 300 MG, UNK
     Dates: end: 20041218
  7. PLAVIX [Concomitant]
     Dosage: 75 MG, QD
     Dates: start: 20041218
  8. EPOGEN [Concomitant]
     Dosage: 10000 U, WEEKLY
  9. PHOLO [Concomitant]
     Dosage: 1, 3 TIMES DAILY WITH MEALS
     Route: 048
  10. ANDROGEL [Concomitant]
  11. KLONOPIN [Concomitant]
  12. ROCURONIUM BROMIDE [Concomitant]
     Dosage: 100 MG, UNK
     Route: 042
     Dates: start: 20041228, end: 20041228
  13. LASIX [Concomitant]
     Dosage: 20 MG, QD
     Dates: end: 20041218
  14. EPIVIR [Concomitant]
     Dosage: 150 MG, UNK
     Dates: end: 20041218
  15. CELEXA [Concomitant]
     Dosage: 20 MG, QD
     Dates: start: 20041218
  16. ACETYLSALICYLIC ACID SRT [Concomitant]
     Dosage: 81 MG, QD
     Dates: start: 20041218
  17. INTEGRILIN [Concomitant]
     Dosage: 2MCG/KG/MIN
     Route: 042
     Dates: start: 20041218
  18. NITROGLYCERIN [Concomitant]
     Dosage: UNK
     Dates: start: 20041219
  19. INSULIN [Concomitant]
     Dosage: 20 U, UNK
     Route: 042
     Dates: start: 20041228
  20. NSAID'S [Concomitant]
     Dosage: 3 TIMES PER WEEK
     Dates: start: 20041001, end: 20041218
  21. HEPARIN [Concomitant]
     Dosage: UNK
     Route: 042
     Dates: start: 20041218
  22. SELECTIVE SEROTONIN REUPTAKE INHIBITORS [Concomitant]
     Dosage: UNK
     Dates: start: 20041218
  23. CISATRACURIUM BESYLATE [Concomitant]
     Dosage: 34 MG, UNK
     Route: 042
     Dates: start: 20041228, end: 20041228
  24. CELEXA [Concomitant]
     Dosage: 20 MG, UNK
     Dates: end: 20041218
  25. VIAGRA [Concomitant]
     Dosage: 100 MG, UNK
     Dates: end: 20041218
  26. SIMVASTATIN [Concomitant]
     Dosage: 40 MG, UNK
     Dates: start: 20041218
  27. PROTAMINE SULFATE [Concomitant]
     Dosage: 320 MG, UNK
     Route: 042
     Dates: start: 20041228, end: 20041228
  28. PEPCID [Concomitant]
     Dosage: 20 MG, QD
     Dates: start: 20041218
  29. MIDAZOLAM HCL [Concomitant]
     Dosage: 10 MG, UNK
     Dates: start: 20041228
  30. TRASYLOL [Suspect]
     Indication: CORONARY ARTERY BYPASS
     Dosage: 200 ML LOADING DOSE, 50 ML/HR INFUSION.
     Route: 042
     Dates: start: 20041228, end: 20041228
  31. WELLBUTRIN [Concomitant]
     Dosage: 300 MG, UNK
     Dates: start: 20041218, end: 20041218
  32. WELLBUTRIN [Concomitant]
     Dosage: 300 MG, QD
     Dates: start: 20041218
  33. METOPROLOL TARTRATE [Concomitant]
     Dosage: 150 MG, TID
     Route: 048
     Dates: start: 20041218
  34. CEFAZOLIN [Concomitant]
     Dosage: 1000 MG, UNK
     Route: 042
     Dates: start: 20041228
  35. NORVASC [Concomitant]
     Dosage: 5 MG, UNK
     Dates: start: 20041218
  36. AVANDIA [Concomitant]
     Dosage: 4 MG, UNK
     Dates: end: 20041218
  37. GLUCOTROL XL [Concomitant]
     Dosage: 10 MG, QD
     Dates: end: 20041218
  38. HEPARIN [Concomitant]
     Dosage: 50000 U, UNK
     Route: 042
     Dates: start: 20041228, end: 20041228
  39. LOPRESSOR [Concomitant]
     Dosage: UNK
     Dates: start: 20041219
  40. AMBIEN [Concomitant]
  41. PROCRIT [Concomitant]
     Dosage: 40000
     Dates: end: 20041218
  42. LASIX [Concomitant]
     Dosage: 20 MG, UNK
     Route: 042
     Dates: start: 20041228
  43. BENADRYL [Concomitant]
     Dosage: 25 MG, UNK
     Dates: end: 20041218
  44. MUCOMYST [Concomitant]
     Dosage: 600, EVERY 2 HOURS
     Route: 048
     Dates: start: 20041218
  45. M.V.I. [Concomitant]
     Dosage: UNK
     Dates: start: 20041218

REACTIONS (14)
  - DEATH [None]
  - ORGAN FAILURE [None]
  - PAIN [None]
  - ANXIETY [None]
  - UNEVALUABLE EVENT [None]
  - FEAR [None]
  - CEREBROVASCULAR ACCIDENT [None]
  - DEPRESSION [None]
  - ANHEDONIA [None]
  - CARDIAC DISORDER [None]
  - RENAL IMPAIRMENT [None]
  - RENAL INJURY [None]
  - RENAL FAILURE [None]
  - INJURY [None]
